FAERS Safety Report 5224553-9 (Version None)
Quarter: 2007Q1

REPORT INFORMATION
  Report Type: 
  Country: None (occurrence: None)
  Receive Date: 20070130
  Receipt Date: 20070115
  Transmission Date: 20070707
  Serious: Yes (Other)
  Sender: FDA-Public Use
  Company Number: BR-PFIZER INC-2007006903

PATIENT
  Age: 43 Year
  Sex: Male

DRUGS (6)
  1. VIRACEPT [Suspect]
     Indication: HIV INFECTION
     Dosage: DAILY DOSE:2500MG
     Route: 048
  2. BIOVIR [Concomitant]
  3. AMITRIPTYLINE HCL [Concomitant]
  4. DARAPRIM [Concomitant]
  5. DRUG, UNSPECIFIED [Concomitant]
  6. FOLIC ACID [Concomitant]

REACTIONS (1)
  - HYPERTHYROIDISM [None]
